FAERS Safety Report 8477355-4 (Version None)
Quarter: 2012Q2

REPORT INFORMATION
  Report Type: 
  Country: None (occurrence: None)
  Receive Date: 20120620
  Receipt Date: 20120611
  Transmission Date: 20120825
  Serious: Yes (Other)
  Sender: FDA-Public Use
  Company Number: 2012SP032101

PATIENT
  Sex: Male

DRUGS (4)
  1. PEG-INTRON [Suspect]
     Indication: HEPATITIS C
     Dates: start: 20020101, end: 20021002
  2. PEG-INTRON [Suspect]
     Indication: HEPATITIS C
     Dates: start: 20111230
  3. RIBAVIRIN [Suspect]
     Indication: HEPATITIS C
     Dates: start: 20020101, end: 20021002
  4. RIBAVIRIN [Suspect]
     Indication: HEPATITIS C
     Dates: start: 20111230

REACTIONS (4)
  - HEPATITIS C [None]
  - LIVER DISORDER [None]
  - DISEASE RECURRENCE [None]
  - SCAR [None]
